FAERS Safety Report 19864676 (Version 2)
Quarter: 2021Q4

REPORT INFORMATION
  Report Type: Other
  Country: US (occurrence: US)
  Receive Date: 20210921
  Receipt Date: 20211221
  Transmission Date: 20220303
  Serious: No
  Sender: FDA-Public Use
  Company Number: US-ACORDA-ACO_170175_2021

PATIENT
  Age: 82 Year
  Sex: Female

DRUGS (3)
  1. INBRIJA [Suspect]
     Active Substance: LEVODOPA
     Indication: On and off phenomenon
     Dosage: 84 MILLIGRAM, AS NEEDED, NOT TO EXCEED 5 DOSES PER DAY
     Dates: start: 20210825
  2. INBRIJA [Suspect]
     Active Substance: LEVODOPA
     Indication: Parkinson^s disease
  3. SINEMET [Concomitant]
     Active Substance: CARBIDOPA\LEVODOPA
     Indication: Product used for unknown indication
     Dosage: EVERY 4 HOURS (1500 MG LEVODOPA PER DAY)
     Route: 065

REACTIONS (8)
  - Device issue [Unknown]
  - Product communication issue [Unknown]
  - Device difficult to use [Unknown]
  - Drug effect less than expected [Unknown]
  - Abdominal discomfort [Unknown]
  - Syncope [Not Recovered/Not Resolved]
  - Aphasia [Not Recovered/Not Resolved]
  - Cough [Not Recovered/Not Resolved]

NARRATIVE: CASE EVENT DATE: 20210828
